FAERS Safety Report 5632114-2 (Version None)
Quarter: 2008Q1

REPORT INFORMATION
  Report Type: 
  Country: None (occurrence: None)
  Receive Date: 20080220
  Receipt Date: 20080213
  Transmission Date: 20080703
  Serious: Yes (Hospitalization)
  Sender: FDA-Public Use
  Company Number: B0508796A

PATIENT
  Age: 41 Year
  Sex: Female

DRUGS (2)
  1. DEROXAT [Suspect]
     Indication: DEPRESSION
     Route: 048
     Dates: start: 20030101
  2. ATARAX [Suspect]
     Indication: DEPRESSION
     Route: 048
     Dates: start: 20030101

REACTIONS (3)
  - HYPOKALAEMIA [None]
  - SUICIDE ATTEMPT [None]
  - TORSADE DE POINTES [None]
